FAERS Safety Report 4971710-2 (Version None)
Quarter: 2006Q2

REPORT INFORMATION
  Report Type: 
  Country: None (occurrence: None)
  Receive Date: 20060413
  Receipt Date: 20060405
  Transmission Date: 20061013
  Serious: Yes (Hospitalization)
  Sender: FDA-Public Use
  Company Number: PHBS2006IN05170

PATIENT
  Age: 23 Year
  Sex: Male

DRUGS (3)
  1. CARBAMAZEPINE [Suspect]
     Dosage: 900 MG/DAY
     Route: 065
  2. OLANZAPINE [Concomitant]
     Dosage: 15 MG/DAY
     Route: 065
  3. LITHIUM [Concomitant]
     Route: 065

REACTIONS (9)
  - AGGRESSION [None]
  - AGITATION [None]
  - BODY TEMPERATURE INCREASED [None]
  - CONDITION AGGRAVATED [None]
  - CONJUNCTIVITIS [None]
  - MUCOSAL ULCERATION [None]
  - PHARYNGOLARYNGEAL PAIN [None]
  - RASH MACULAR [None]
  - STEVENS-JOHNSON SYNDROME [None]
